FAERS Safety Report 15088504 (Version 3)
Quarter: 2018Q3

REPORT INFORMATION
  Report Type: Report from Study
  Country: FR (occurrence: FR)
  Receive Date: 20180629
  Receipt Date: 20180703
  Transmission Date: 20181010
  Serious: Yes (Hospitalization)
  Sender: FDA-Public Use
  Company Number: FR-ASTRAZENECA-2018SE64349

PATIENT
  Age: 832 Month
  Sex: Male
  Weight: 88 kg

DRUGS (10)
  1. CRESTOR [Concomitant]
     Active Substance: ROSUVASTATIN CALCIUM
     Dosage: 5MG
  2. BROMAZEPAM [Concomitant]
     Active Substance: BROMAZEPAM
  3. ISOPTINE LP [Concomitant]
     Active Substance: VERAPAMIL HYDROCHLORIDE
     Dosage: 240MG
  4. ZYLORIC [Concomitant]
     Active Substance: ALLOPURINOL
     Dosage: 200MG
  5. LYRICA [Concomitant]
     Active Substance: PREGABALIN
  6. INEXIUM [Concomitant]
     Active Substance: ESOMEPRAZOLE
     Dosage: 40MG
  7. DURVALUMAB. [Suspect]
     Active Substance: DURVALUMAB
     Indication: NON-SMALL CELL LUNG CANCER
     Dosage: 880.0MG ONCE/SINGLE ADMINISTRATION
     Route: 042
     Dates: start: 20180606
  8. DURVALUMAB. [Suspect]
     Active Substance: DURVALUMAB
     Indication: NON-SMALL CELL LUNG CANCER
     Dosage: 860.0MG ONCE/SINGLE ADMINISTRATION
     Route: 042
     Dates: start: 20180328
  9. DURVALUMAB. [Suspect]
     Active Substance: DURVALUMAB
     Indication: NON-SMALL CELL LUNG CANCER
     Dosage: 870.0MG ONCE/SINGLE ADMINISTRATION
     Route: 042
     Dates: start: 20180425
  10. DURVALUMAB. [Suspect]
     Active Substance: DURVALUMAB
     Indication: NON-SMALL CELL LUNG CANCER
     Dosage: 890.0MG ONCE/SINGLE ADMINISTRATION
     Route: 042
     Dates: start: 20180509

REACTIONS (3)
  - Thyroxine free abnormal [Recovered/Resolved]
  - Blood thyroid stimulating hormone decreased [Recovered/Resolved]
  - Nasal polyps [Unknown]

NARRATIVE: CASE EVENT DATE: 201804
